FAERS Safety Report 9718040 (Version 1)
Quarter: 2013Q4

REPORT INFORMATION
  Report Type: Not Available
  Country: US (occurrence: US)
  Receive Date: 20131125
  Receipt Date: 20131125
  Transmission Date: 20140711
  Serious: No
  Sender: FDA-Public Use
  Company Number: US-VIVUS-2013V1000458

PATIENT
  Age: 57 Year
  Sex: Female
  Weight: 80.81 kg

DRUGS (14)
  1. QSYMIA 15MG/92MG [Suspect]
     Indication: WEIGHT DECREASED
     Route: 048
     Dates: start: 20130613
  2. QSYMIA 15MG/92MG [Suspect]
     Indication: TYPE 2 DIABETES MELLITUS
  3. QSYMIA 15MG/92MG [Suspect]
     Indication: BLOOD CHOLESTEROL INCREASED
  4. QSYMIA 3.75MG/23MG [Suspect]
     Indication: WEIGHT DECREASED
     Route: 048
     Dates: start: 20130503, end: 20130509
  5. QSYMIA 3.75MG/23MG [Suspect]
     Indication: BLOOD CHOLESTEROL INCREASED
  6. QSYMIA 3.75MG/23MG [Suspect]
     Indication: TYPE 2 DIABETES MELLITUS
  7. QSYMIA 7.5MG/46MG [Suspect]
     Indication: WEIGHT DECREASED
     Route: 048
     Dates: start: 20130510, end: 20130530
  8. QSYMIA 7.5MG/46MG [Suspect]
     Indication: TYPE 2 DIABETES MELLITUS
  9. QSYMIA 7.5MG/46MG [Suspect]
     Indication: BLOOD CHOLESTEROL INCREASED
  10. LIPITOR [Concomitant]
     Indication: BLOOD CHOLESTEROL INCREASED
     Route: 048
     Dates: start: 2001
  11. ASPIRIN [Concomitant]
     Indication: PROPHYLAXIS
     Route: 048
     Dates: start: 2005
  12. PROTONIX [Concomitant]
     Indication: DYSPEPSIA
     Route: 048
     Dates: start: 2011
  13. HYDROXYZINE [Concomitant]
     Indication: ANXIETY
     Route: 048
     Dates: start: 2011
  14. HYDROXYZINE [Concomitant]
     Indication: INSOMNIA

REACTIONS (3)
  - Feeling jittery [Not Recovered/Not Resolved]
  - Headache [Not Recovered/Not Resolved]
  - Drug dose omission [Recovered/Resolved]
